FAERS Safety Report 12485526 (Version 2)
Quarter: 2016Q3

REPORT INFORMATION
  Report Type: Spontaneous
  Country: US (occurrence: US)
  Receive Date: 20160621
  Receipt Date: 20160907
  Transmission Date: 20161109
  Serious: No
  Sender: FDA-Public Use
  Company Number: US-JNJFOC-20160607152

PATIENT
  Sex: Female
  Weight: 83.92 kg

DRUGS (6)
  1. DURAGESIC [Suspect]
     Active Substance: FENTANYL
     Indication: MIGRAINE
     Route: 062
  2. DURAGESIC [Suspect]
     Active Substance: FENTANYL
     Indication: PAIN
     Route: 062
  3. DURAGESIC [Suspect]
     Active Substance: FENTANYL
     Indication: MIGRAINE
     Route: 062
  4. DURAGESIC [Suspect]
     Active Substance: FENTANYL
     Indication: PAIN
     Route: 062
  5. DURAGESIC [Suspect]
     Active Substance: FENTANYL
     Indication: PAIN
     Route: 062
  6. DURAGESIC [Suspect]
     Active Substance: FENTANYL
     Indication: MIGRAINE
     Route: 062

REACTIONS (7)
  - Wrong technique in product usage process [Unknown]
  - Fatigue [Unknown]
  - Product quality issue [Unknown]
  - Underdose [Unknown]
  - Drug effect decreased [Unknown]
  - Adverse event [Recovered/Resolved]
  - Headache [Unknown]
